FAERS Safety Report 16076450 (Version 1)
Quarter: 2019Q1

REPORT INFORMATION
  Report Type: Spontaneous
  Country: US (occurrence: US)
  Receive Date: 20190214
  Receipt Date: 20190214
  Transmission Date: 20190418
  Serious: No
  Sender: FDA-Public Use
  Company Number: None

PATIENT
  Age: 64 Year
  Sex: Female

DRUGS (1)
  1. IBRANCE [Suspect]
     Active Substance: PALBOCICLIB
     Dates: start: 20180801

REACTIONS (5)
  - Dry eye [None]
  - Pain [None]
  - Product dose omission [None]
  - Drug level decreased [None]
  - Oral pain [None]

NARRATIVE: CASE EVENT DATE: 20190214
